FAERS Safety Report 8589102-6 (Version None)
Quarter: 2012Q3

REPORT INFORMATION
  Report Type: 
  Country: None (occurrence: None)
  Receive Date: 20120813
  Receipt Date: 20120801
  Transmission Date: 20120928
  Serious: Yes (Hospitalization)
  Sender: FDA-Public Use
  Company Number: JP-UCBSA-059597

PATIENT
  Age: 42 Year
  Sex: Female
  Weight: 48 kg

DRUGS (7)
  1. LAMICTAL [Concomitant]
     Dosage: DAILY DOSE-200 MG
     Route: 048
     Dates: start: 20110805
  2. TEGRETOL [Concomitant]
     Dosage: DAILY DOSE-800 MG
     Route: 048
     Dates: start: 20110805
  3. DEPAKENE [Concomitant]
     Dosage: DAILY DOSE-700 MG
     Route: 048
     Dates: start: 20110805
  4. PHENYTOIN SODIUM CAP [Concomitant]
     Dosage: DAILY DOSE-250 MG
     Route: 048
     Dates: start: 20110805
  5. KEPPRA [Suspect]
     Route: 048
     Dates: start: 20120518, end: 20120531
  6. KEPPRA [Suspect]
     Indication: EPILEPSY
     Route: 048
     Dates: start: 20120601, end: 20120606
  7. GABAPENTIN [Concomitant]
     Dosage: DAILY DOSE-2400 MG
     Route: 048
     Dates: start: 20110805

REACTIONS (3)
  - WHITE BLOOD CELL COUNT DECREASED [None]
  - PLATELET COUNT DECREASED [None]
  - HEPATIC FUNCTION ABNORMAL [None]
